FAERS Safety Report 6062888-0 (Version None)
Quarter: 2009Q1

REPORT INFORMATION
  Report Type: 
  Country: None (occurrence: None)
  Receive Date: 20090202
  Receipt Date: 20090202
  Transmission Date: 20090719
  Serious: Yes (Hospitalization, Other)
  Sender: FDA-Public Use
  Company Number: None

PATIENT
  Age: 10 Year
  Sex: Male
  Weight: 36.7414 kg

DRUGS (1)
  1. IMITREX [Suspect]
     Indication: MIGRAINE
     Dosage: NASAL, AS NEEDED FOR MIGRAINES
     Route: 045
     Dates: start: 20080201, end: 20090122

REACTIONS (2)
  - GRAND MAL CONVULSION [None]
  - HEADACHE [None]
